FAERS Safety Report 4997974-7 (Version None)
Quarter: 2006Q2

REPORT INFORMATION
  Report Type: 
  Country: None (occurrence: None)
  Receive Date: 20060510
  Receipt Date: 20060125
  Transmission Date: 20061013
  Serious: Yes (Life-Threatening, Hospitalization)
  Sender: FDA-Public Use
  Company Number: US-ROCHE-433893

PATIENT
  Age: 29 Year
  Sex: Male
  Weight: 90.7 kg

DRUGS (2)
  1. ACCUTANE [Suspect]
     Indication: ACNE
     Route: 048
     Dates: start: 19840615, end: 19850615
  2. ACCUTANE [Suspect]
     Route: 048
     Dates: start: 19850615, end: 19870615

REACTIONS (17)
  - ARTHRITIS [None]
  - BACK PAIN [None]
  - BONE DISORDER [None]
  - COAGULOPATHY [None]
  - DEPRESSION [None]
  - DIALYSIS [None]
  - DIZZINESS [None]
  - DYSPEPSIA [None]
  - GASTROOESOPHAGEAL REFLUX DISEASE [None]
  - GOUT [None]
  - HYPERTENSION [None]
  - KIDNEY TRANSPLANT REJECTION [None]
  - RENAL DISORDER [None]
  - RENAL FAILURE [None]
  - SOMNOLENCE [None]
  - VISION BLURRED [None]
  - VOMITING [None]
